FAERS Safety Report 6518968-6 (Version None)
Quarter: 2009Q4

REPORT INFORMATION
  Report Type: 
  Country: None (occurrence: None)
  Receive Date: 20091228
  Receipt Date: 20091221
  Transmission Date: 20100525
  Serious: Yes (Death, Life-Threatening, Hospitalization, Other)
  Sender: FDA-Public Use
  Company Number: US-BAYER-200936931NA

PATIENT
  Age: 57 Year
  Sex: Male
  Weight: 79 kg

DRUGS (8)
  1. NEXAVAR [Suspect]
     Indication: HEPATIC NEOPLASM MALIGNANT
     Dosage: TOTAL DAILY DOSE: 400 MG  UNIT DOSE: 200 MG
     Route: 048
     Dates: start: 20081009, end: 20081021
  2. NEXAVAR [Suspect]
     Dosage: TOTAL DAILY DOSE: 400 MG  UNIT DOSE: 200 MG
     Route: 048
     Dates: start: 20081027, end: 20081108
  3. WARFARIN SODIUM [Concomitant]
     Dosage: TOTAL DAILY DOSE: 5 MG
     Dates: end: 20081021
  4. WARFARIN SODIUM [Concomitant]
     Dosage: AS USED: 25 MG
     Dates: start: 20081027, end: 20081108
  5. BUPROPION HCL [Concomitant]
     Dosage: TOTAL DAILY DOSE: 150 MG
     Route: 048
  6. ENALAPRIL [Concomitant]
  7. ENOXAPARIN SODIUM [Concomitant]
  8. LACTULOSE [Concomitant]

REACTIONS (2)
  - HEPATIC NEOPLASM MALIGNANT [None]
  - INTERNATIONAL NORMALISED RATIO INCREASED [None]
